APPROVED DRUG PRODUCT: HYDROXYZINE PAMOATE
Active Ingredient: HYDROXYZINE PAMOATE
Strength: EQ 50MG HYDROCHLORIDE
Dosage Form/Route: CAPSULE;ORAL
Application: A088487 | Product #001 | TE Code: AB
Applicant: BARR LABORATORIES LLC (AN INDIRECT WHOLLY OWNED SUB OF TEVA PHARMACEUTICALS USA INC)
Approved: Jun 15, 1984 | RLD: No | RS: No | Type: RX